FAERS Safety Report 7503084-7 (Version None)
Quarter: 2011Q2

REPORT INFORMATION
  Report Type: 
  Country: None (occurrence: None)
  Receive Date: 20110525
  Receipt Date: 20101014
  Transmission Date: 20111010
  Serious: No
  Sender: FDA-Public Use
  Company Number: CA-NOVEN-ALL1-2010-05396

PATIENT
  Age: 9 Year
  Sex: Male
  Weight: 35.374 kg

DRUGS (1)
  1. DAYTRANA [Suspect]
     Dosage: 10 MG, UNKNOWN
     Route: 062
     Dates: start: 20101012

REACTIONS (3)
  - APPLICATION SITE ERYTHEMA [None]
  - AGITATION [None]
  - DRUG EFFECT DELAYED [None]
